FAERS Safety Report 10801734 (Version 2)
Quarter: 2015Q4

REPORT INFORMATION
  Report Type: Spontaneous
  Country: US (occurrence: US)
  Receive Date: 20150217
  Receipt Date: 20151113
  Transmission Date: 20160304
  Serious: Yes (Other)
  Sender: FDA-Public Use
  Company Number: US-BAYER-2015-020022

PATIENT
  Age: 27 Year
  Sex: Female

DRUGS (8)
  1. MIRCETTE [Concomitant]
     Active Substance: DESOGESTREL\ETHINYL ESTRADIOL
  2. FELDENE [Concomitant]
     Active Substance: PIROXICAM
  3. NAPROXEN. [Concomitant]
     Active Substance: NAPROXEN
  4. PREDNISONE. [Concomitant]
     Active Substance: PREDNISONE
  5. GIANVI [Suspect]
     Active Substance: DROSPIRENONE\ETHINYL ESTRADIOL
  6. VITAMIN B1 [Concomitant]
     Active Substance: THIAMINE HYDROCHLORIDE
  7. YAZ [Suspect]
     Active Substance: DROSPIRENONE\ETHINYL ESTRADIOL
  8. NASONEX [Concomitant]
     Active Substance: MOMETASONE FUROATE

REACTIONS (6)
  - General physical health deterioration [None]
  - Injury [None]
  - Deformity [None]
  - Pain [None]
  - Anxiety [None]
  - Embolism venous [None]

NARRATIVE: CASE EVENT DATE: 201303
